FAERS Safety Report 16373792 (Version 2)
Quarter: 2019Q2

REPORT INFORMATION
  Report Type: Report from Study
  Country: US (occurrence: US)
  Receive Date: 20190530
  Receipt Date: 20190603
  Transmission Date: 20190711
  Serious: No
  Sender: FDA-Public Use
  Company Number: US-SA-2019SA146502

PATIENT
  Age: 53 Year
  Sex: Female

DRUGS (3)
  1. DUPILUMAB [Suspect]
     Active Substance: DUPILUMAB
     Indication: RASH
     Dosage: 300 MG, QOW
     Route: 058
     Dates: start: 201812, end: 201812
  2. DUPILUMAB [Suspect]
     Active Substance: DUPILUMAB
     Dosage: UNK UNK, QOW
     Route: 058
     Dates: start: 20190516
  3. DUPILUMAB [Suspect]
     Active Substance: DUPILUMAB
     Indication: DERMATITIS
     Dosage: 300 MG, QOW
     Route: 058
     Dates: start: 20190128, end: 20190306

REACTIONS (12)
  - Rash [Unknown]
  - Arthralgia [Recovering/Resolving]
  - Pain [Unknown]
  - Muscular weakness [Unknown]
  - Fatigue [Unknown]
  - Hypersensitivity [Unknown]
  - Asthenia [Unknown]
  - Influenza like illness [Unknown]
  - Drug ineffective [Unknown]
  - Dyspnoea [Unknown]
  - Choking sensation [Unknown]
  - Myalgia [Recovering/Resolving]

NARRATIVE: CASE EVENT DATE: 20190501
